FAERS Safety Report 8612804-X (Version None)
Quarter: 2012Q3

REPORT INFORMATION
  Report Type: 
  Country: None (occurrence: None)
  Receive Date: 20120822
  Receipt Date: 20111130
  Transmission Date: 20120928
  Serious: No
  Sender: FDA-Public Use
  Company Number: US-ASTRAZENECA-2010SE15280

PATIENT
  Age: 42 Year
  Sex: Female

DRUGS (3)
  1. DIFACAM [Concomitant]
     Indication: CANDIDIASIS
  2. SYMBICORT [Suspect]
     Dosage: TWO DAILY
     Route: 055
     Dates: start: 20100101
  3. NEXIUM [Suspect]
     Route: 048

REACTIONS (4)
  - DYSPNOEA [None]
  - MULTIPLE ALLERGIES [None]
  - ORAL CANDIDIASIS [None]
  - LARYNGITIS [None]
